FAERS Safety Report 11198189 (Version 1)
Quarter: 2015Q2

REPORT INFORMATION
  Report Type: Spontaneous
  Country: US (occurrence: US)
  Receive Date: 20150618
  Receipt Date: 20150618
  Transmission Date: 20150821
  Serious: No
  Sender: FDA-Public Use
  Company Number: US-009507513-1506USA008331

PATIENT
  Age: 44 Year
  Sex: Female

DRUGS (12)
  1. OLANZAPINE. [Concomitant]
     Active Substance: OLANZAPINE
     Indication: PARANOIA
     Dosage: 40 MG DAILY
  2. REMERON [Suspect]
     Active Substance: MIRTAZAPINE
     Indication: AGGRESSION
  3. REMERON [Suspect]
     Active Substance: MIRTAZAPINE
     Indication: HALLUCINATION, AUDITORY
  4. OLANZAPINE. [Concomitant]
     Active Substance: OLANZAPINE
     Indication: IRRITABILITY
     Dosage: 50 MG DAILY
  5. OLANZAPINE. [Concomitant]
     Active Substance: OLANZAPINE
     Indication: HALLUCINATION, VISUAL
  6. REMERON [Suspect]
     Active Substance: MIRTAZAPINE
     Indication: AGGRESSION
     Dosage: 30 MG, UNK
     Route: 048
  7. REMERON [Suspect]
     Active Substance: MIRTAZAPINE
     Indication: IRRITABILITY
  8. OLANZAPINE. [Concomitant]
     Active Substance: OLANZAPINE
     Indication: AGGRESSION
     Dosage: 20 MG DAILY
  9. OLANZAPINE. [Concomitant]
     Active Substance: OLANZAPINE
     Indication: AGGRESSION
     Dosage: 60 MG DAILY
  10. OLANZAPINE. [Concomitant]
     Active Substance: OLANZAPINE
     Indication: HALLUCINATION, AUDITORY
  11. REMERON [Suspect]
     Active Substance: MIRTAZAPINE
     Indication: PARANOIA
  12. REMERON [Suspect]
     Active Substance: MIRTAZAPINE
     Indication: HALLUCINATION, VISUAL

REACTIONS (2)
  - Drug ineffective [Unknown]
  - Irritability [Recovering/Resolving]
